FAERS Safety Report 7959555-2 (Version None)
Quarter: 2011Q4

REPORT INFORMATION
  Report Type: 
  Country: None (occurrence: None)
  Receive Date: 20111206
  Receipt Date: 20111125
  Transmission Date: 20120403
  Serious: Yes (Hospitalization)
  Sender: FDA-Public Use
  Company Number: RU-ROCHE-687677

PATIENT
  Sex: Female

DRUGS (10)
  1. HERCEPTIN [Suspect]
     Indication: BREAST CANCER
     Dosage: LOADING DOSE
     Route: 042
  2. LAPATINIB [Suspect]
     Route: 048
  3. PACLITAXEL [Suspect]
     Route: 042
  4. CYCLOPHOSPHAMIDE [Concomitant]
     Indication: BREAST CANCER
     Route: 042
  5. HERCEPTIN [Suspect]
     Route: 042
  6. PACLITAXEL [Suspect]
     Indication: BREAST CANCER
     Route: 042
  7. HERCEPTIN [Suspect]
     Dosage: MAINTENANCE DOSE
     Route: 042
  8. FLUOROURACIL [Concomitant]
     Indication: BREAST CANCER
     Route: 042
  9. LAPATINIB [Suspect]
     Indication: BREAST CANCER
     Route: 048
  10. ETOPOSIDE [Concomitant]
     Indication: BREAST CANCER
     Route: 042

REACTIONS (3)
  - MYOCARDIAL ISCHAEMIA [None]
  - ARTERIOSCLEROSIS CORONARY ARTERY [None]
  - CARDIAC FAILURE CONGESTIVE [None]
